FAERS Safety Report 9681093 (Version 1)
Quarter: 2013Q4

REPORT INFORMATION
  Report Type: Spontaneous
  Country: US (occurrence: None)
  Receive Date: 20131108
  Receipt Date: 20131108
  Transmission Date: 20140711
  Serious: No
  Sender: FDA-Public Use
  Company Number: None

PATIENT
  Age: 40 Year
  Sex: Male
  Weight: 111.13 kg

DRUGS (1)
  1. SEROQUEL 50MG, 25MG LUPIN [Suspect]
     Indication: BIPOLAR DISORDER
     Route: 048

REACTIONS (1)
  - Product substitution issue [None]
